FAERS Safety Report 20602563 (Version 1)
Quarter: 2022Q1

REPORT INFORMATION
  Report Type: Report from Study
  Country: IT (occurrence: IT)
  Receive Date: 20220316
  Receipt Date: 20220316
  Transmission Date: 20220423
  Serious: Yes (Other)
  Sender: FDA-Public Use
  Company Number: None

PATIENT
  Age: 27 Year
  Sex: Female

DRUGS (2)
  1. AMOXICILLIN\CLAVULANIC ACID [Suspect]
     Active Substance: AMOXICILLIN\CLAVULANIC ACID
     Indication: Wisdom teeth removal
     Dates: start: 20220205, end: 20220205
  2. IBUPROFEN [Suspect]
     Active Substance: IBUPROFEN
     Indication: Wisdom teeth removal
     Dates: start: 20220205, end: 20220205

REACTIONS (3)
  - Laryngeal oedema [Recovering/Resolving]
  - Lip oedema [Recovering/Resolving]
  - Rash [Recovering/Resolving]

NARRATIVE: CASE EVENT DATE: 20220205
